FAERS Safety Report 4665290-9 (Version None)
Quarter: 2005Q2

REPORT INFORMATION
  Report Type: 
  Country: None (occurrence: None)
  Receive Date: 20050517
  Receipt Date: 20050503
  Transmission Date: 20051028
  Serious: Yes (Death)
  Sender: FDA-Public Use
  Company Number: USA050597132

PATIENT
  Age: 51 Year
  Sex: Male

DRUGS (3)
  1. SYMBIAX-OLANZAPINE 12 MG / FLUOXETINE 50 MG (OLANZAPI [Suspect]
     Indication: SCHIZOPHRENIA
     Dates: start: 20040101, end: 20050101
  2. VALIUM [Concomitant]
  3. FENTANYL [Concomitant]

REACTIONS (1)
  - DRUG TOXICITY [None]
